FAERS Safety Report 18945348 (Version 1)
Quarter: 2021Q1

REPORT INFORMATION
  Report Type: Spontaneous
  Country: US (occurrence: US)
  Receive Date: 20210226
  Receipt Date: 20210226
  Transmission Date: 20210420
  Serious: No
  Sender: FDA-Public Use
  Company Number: US-GLAXOSMITHKLINE-US2021AMR045095

PATIENT
  Age: 80 Year
  Sex: Female
  Weight: 67.13 kg

DRUGS (11)
  1. DOXAZOSIN [Concomitant]
     Active Substance: DOXAZOSIN MESYLATE
     Indication: BLOOD PRESSURE ABNORMAL
     Dosage: 1 MG, QD
  2. PRAVASTATIN. [Concomitant]
     Active Substance: PRAVASTATIN
     Indication: BLOOD CHOLESTEROL INCREASED
     Dosage: 20 MG, QD
  3. PFIZER?BIONTECH COVID?19 VACCINE [Suspect]
     Active Substance: TOZINAMERAN
     Indication: PROPHYLAXIS
     Dosage: UNK
     Dates: start: 20210120
  4. HUMIRA [Suspect]
     Active Substance: ADALIMUMAB
     Indication: PSORIATIC ARTHROPATHY
     Dosage: 40 MG, Z (EVERY 2 WEEKS)
     Route: 042
     Dates: start: 202011
  5. ZETIA [Concomitant]
     Active Substance: EZETIMIBE
     Indication: BLOOD CHOLESTEROL INCREASED
     Dosage: 10 MG, QD
  6. L?THYROXINE [Concomitant]
     Active Substance: LEVOTHYROXINE
     Indication: PRODUCT USED FOR UNKNOWN INDICATION
     Dosage: 50 UG, QD
  7. EDARBI [Concomitant]
     Active Substance: AZILSARTAN KAMEDOXOMIL
     Indication: BLOOD PRESSURE ABNORMAL
     Dosage: 80 MG, QD
  8. JANUMET XR [Concomitant]
     Active Substance: METFORMIN HYDROCHLORIDE\SITAGLIPTIN PHOSPHATE
     Indication: TYPE 2 DIABETES MELLITUS
     Dosage: 2 DF, QD (TABLETS) 50?1000MG TABLET
  9. VALACICLOVIR HYDROCHLORIDE [Suspect]
     Active Substance: VALACYCLOVIR HYDROCHLORIDE
     Indication: PRODUCT USED FOR UNKNOWN INDICATION
     Dosage: 1 G, TID
  10. GABAPENTIN. [Suspect]
     Active Substance: GABAPENTIN
     Indication: PRODUCT USED FOR UNKNOWN INDICATION
     Dosage: UNK
  11. TRULICITY [Concomitant]
     Active Substance: DULAGLUTIDE
     Indication: PRODUCT USED FOR UNKNOWN INDICATION
     Dosage: 5 MG, Z (ONCE A WEEK)
     Route: 042

REACTIONS (8)
  - Herpes zoster [Unknown]
  - Rash [Not Recovered/Not Resolved]
  - Bacterial infection [Unknown]
  - General physical health deterioration [Unknown]
  - Visual impairment [Unknown]
  - Hypersensitivity [Unknown]
  - Loss of personal independence in daily activities [Unknown]
  - Condition aggravated [Unknown]

NARRATIVE: CASE EVENT DATE: 20210127
